FAERS Safety Report 21329122 (Version 1)
Quarter: 2022Q3

REPORT INFORMATION
  Report Type: Spontaneous
  Country: US (occurrence: None)
  Receive Date: 20220912
  Receipt Date: 20220912
  Transmission Date: 20221027
  Serious: No
  Sender: FDA-Public Use
  Company Number: None

PATIENT
  Age: 31 Year
  Sex: Male
  Weight: 66 kg

DRUGS (2)
  1. CIPROFLOXACIN [Suspect]
     Active Substance: CIPROFLOXACIN
     Indication: Anal abscess
     Dosage: FREQUENCY : TWICE A DAY;?
     Route: 048
     Dates: start: 20220902, end: 20220911
  2. FINASTERIDE [Concomitant]
     Active Substance: FINASTERIDE

REACTIONS (5)
  - Arthritis [None]
  - Arthralgia [None]
  - Arthralgia [None]
  - Musculoskeletal discomfort [None]
  - Paraesthesia [None]
